FAERS Safety Report 10271343 (Version 3)
Quarter: 2014Q3

REPORT INFORMATION
  Report Type: Spontaneous
  Country: NO (occurrence: NO)
  Receive Date: 20140701
  Receipt Date: 20140724
  Transmission Date: 20150326
  Serious: Yes (Life-Threatening, Hospitalization)
  Sender: FDA-Public Use
  Company Number: NO-PFIZER INC-2014175629

PATIENT
  Age: 64 Year
  Sex: Male

DRUGS (2)
  1. LIPITOR [Suspect]
     Active Substance: ATORVASTATIN CALCIUM
     Indication: HYPERCHOLESTEROLAEMIA
     Dosage: 80 MG, 1X/DAY
     Route: 048
     Dates: end: 20140316
  2. EZETROL [Concomitant]
     Active Substance: EZETIMIBE
     Indication: HYPERCHOLESTEROLAEMIA
     Dosage: 10 MG, 1X/DAY

REACTIONS (4)
  - Rhabdomyolysis [Recovered/Resolved with Sequelae]
  - Renal failure [Recovered/Resolved with Sequelae]
  - Immune-mediated necrotising myopathy [Recovered/Resolved with Sequelae]
  - Paresis [Recovered/Resolved with Sequelae]

NARRATIVE: CASE EVENT DATE: 2014
